FAERS Safety Report 10645308 (Version 1)
Quarter: 2014Q4

REPORT INFORMATION
  Report Type: Spontaneous
  Country: US (occurrence: None)
  Receive Date: 20141210
  Receipt Date: 20141210
  Transmission Date: 20150529
  Serious: Yes (Other)
  Sender: FDA-Public Use
  Company Number: None

PATIENT
  Age: 58 Year
  Sex: Female
  Weight: 64.6 kg

DRUGS (2)
  1. VPRIV [Suspect]
     Active Substance: VELAGLUCERASE ALFA
     Indication: GAUCHER^S DISEASE
     Dosage: 60 UNITS/KG, EVERY 2 WEEKS
     Route: 042
     Dates: start: 201110, end: 201404
  2. CEREZYME [Suspect]
     Active Substance: IMIGLUCERASE
     Indication: GAUCHER^S DISEASE
     Dosage: 60 UNITS/KG, EVERY 2 WEEKS
     Route: 042
     Dates: start: 201404

REACTIONS (1)
  - Renal cell carcinoma [None]

NARRATIVE: CASE EVENT DATE: 20140816
